FAERS Safety Report 9955133 (Version 1)
Quarter: 2014Q1

REPORT INFORMATION
  Report Type: Report from Study
  Country: ES (occurrence: ES)
  Receive Date: 20140304
  Receipt Date: 20140304
  Transmission Date: 20141002
  Serious: Yes (Death)
  Sender: FDA-Public Use
  Company Number: ES-BAXTER-2014BAX011403

PATIENT
  Sex: 0

DRUGS (2)
  1. TRONOXAL 1G INYECTABLE [Suspect]
     Indication: SARCOMA
     Route: 042
  2. EPIRUBICIN [Suspect]
     Indication: SARCOMA
     Route: 065

REACTIONS (1)
  - Death [Fatal]
